FAERS Safety Report 17414881 (Version 1)
Quarter: 2020Q1

REPORT INFORMATION
  Report Type: Spontaneous
  Country: US (occurrence: US)
  Receive Date: 20200213
  Receipt Date: 20200213
  Transmission Date: 20200409
  Serious: Yes (Other)
  Sender: FDA-Public Use
  Company Number: US-PFIZER INC-2019413096

PATIENT
  Age: 59 Year
  Sex: Female
  Weight: 87.98 kg

DRUGS (1)
  1. IBRANCE [Suspect]
     Active Substance: PALBOCICLIB
     Indication: BREAST CANCER FEMALE
     Dosage: 125 MG, CYCLIC (DAILY, DAYS 1-21 EVERY 28 DAYS)
     Route: 048
     Dates: start: 201903

REACTIONS (2)
  - Abdominal discomfort [Unknown]
  - Alopecia [Unknown]
